FAERS Safety Report 14519847 (Version 1)
Quarter: 2018Q1

REPORT INFORMATION
  Report Type: Spontaneous
  Country: US (occurrence: US)
  Receive Date: 20180212
  Receipt Date: 20180212
  Transmission Date: 20180509
  Serious: Yes (Life-Threatening, Hospitalization, Disabling)
  Sender: FDA-Public Use
  Company Number: None

PATIENT
  Age: 78 Year
  Sex: Male
  Weight: 270 kg

DRUGS (12)
  1. METAMUCIL [Concomitant]
     Active Substance: PLANTAGO SEED
  2. CARDURA [Suspect]
     Active Substance: DOXAZOSIN MESYLATE
     Indication: HYPERTENSION
     Dosage: 1 PILL PREFERABLE TAKEN IN EVENING 1 ONCE A DAY MOUTH
     Route: 048
  3. POTASSIUM [Concomitant]
     Active Substance: POTASSIUM
  4. LISINOPRIL. [Concomitant]
     Active Substance: LISINOPRIL
  5. ALEVE [Concomitant]
     Active Substance: NAPROXEN SODIUM
  6. VITAMIN D3 [Concomitant]
     Active Substance: CHOLECALCIFEROL
  7. MAG OX [Concomitant]
     Active Substance: MAGNESIUM OXIDE
  8. LEVOTYROXINE [Concomitant]
  9. CINNAMON. [Concomitant]
     Active Substance: CINNAMON
  10. FISH OIL [Concomitant]
     Active Substance: FISH OIL
  11. LECITHIN [Concomitant]
     Active Substance: LECITHIN
  12. VITAMIN C [Concomitant]
     Active Substance: ASCORBIC ACID

REACTIONS (3)
  - Dysstasia [None]
  - Hair growth rate abnormal [None]
  - Gait disturbance [None]

NARRATIVE: CASE EVENT DATE: 20041026
